FAERS Safety Report 7240664-0 (Version None)
Quarter: 2011Q1

REPORT INFORMATION
  Report Type: 
  Country: None (occurrence: None)
  Receive Date: 20110120
  Receipt Date: 20110120
  Transmission Date: 20110831
  Serious: Yes (Other)
  Sender: FDA-Public Use
  Company Number: None

PATIENT
  Age: 69 Year
  Sex: Male
  Weight: 68.0396 kg

DRUGS (2)
  1. VENLAFAXINE [Suspect]
  2. EFFEXOR [Suspect]
     Indication: DEPRESSION
     Dosage: 75MG 1 PER DAY

REACTIONS (1)
  - BENIGN PROSTATIC HYPERPLASIA [None]
